FAERS Safety Report 4968505-2 (Version None)
Quarter: 2006Q2

REPORT INFORMATION
  Report Type: 
  Country: None (occurrence: None)
  Receive Date: 20060410
  Receipt Date: 20050822
  Transmission Date: 20061013
  Serious: Yes (Hospitalization)
  Sender: FDA-Public Use
  Company Number: US-MERCK-0508USA03645

PATIENT
  Age: 61 Year
  Sex: Male

DRUGS (4)
  1. VIOXX [Suspect]
     Indication: LIMB DISCOMFORT
     Route: 048
     Dates: start: 20030101
  2. VIOXX [Suspect]
     Indication: CHEST DISCOMFORT
     Route: 048
     Dates: start: 20030101
  3. SOMA [Concomitant]
     Indication: LIMB DISCOMFORT
     Route: 065
     Dates: start: 20030101
  4. SOMA [Concomitant]
     Indication: CHEST DISCOMFORT
     Route: 065
     Dates: start: 20030101

REACTIONS (7)
  - ACUTE CORONARY SYNDROME [None]
  - BRACHIAL PLEXUS INJURY [None]
  - CARDIOMEGALY [None]
  - CORONARY ARTERY DISEASE [None]
  - HYPERLIPIDAEMIA [None]
  - INJURY [None]
  - POST PROCEDURAL COMPLICATION [None]
